FAERS Safety Report 16620615 (Version 2)
Quarter: 2019Q3

REPORT INFORMATION
  Report Type: Spontaneous
  Country: IT (occurrence: IT)
  Receive Date: 20190723
  Receipt Date: 20190726
  Transmission Date: 20191004
  Serious: Yes (Disabling)
  Sender: FDA-Public Use
  Company Number: IT-FERRINGPH-2019FE04455

PATIENT

DRUGS (3)
  1. MINIRIN [Suspect]
     Active Substance: DESMOPRESSIN ACETATE
     Indication: DIABETES INSIPIDUS
     Dosage: 90 ?G, DAILY
     Route: 060
     Dates: start: 20190706
  2. MINIRIN [Suspect]
     Active Substance: DESMOPRESSIN ACETATE
     Dosage: 30 MCG OF A TABLET (OVERALL I TOOK 2)
     Route: 060
     Dates: start: 20190703, end: 20190704
  3. MINIRIN [Suspect]
     Active Substance: DESMOPRESSIN ACETATE
     Dosage: 30 ?G, 3 TIMES DAILY FOR OVER 10 YEARS

REACTIONS (4)
  - Suspected product quality issue [Not Recovered/Not Resolved]
  - Product taste abnormal [Not Recovered/Not Resolved]
  - Thirst [Not Recovered/Not Resolved]
  - Wrong technique in product usage process [Unknown]

NARRATIVE: CASE EVENT DATE: 20190706
